FAERS Safety Report 5698642-9 (Version None)
Quarter: 2008Q2

REPORT INFORMATION
  Report Type: 
  Country: None (occurrence: None)
  Receive Date: 20080408
  Receipt Date: 20061227
  Transmission Date: 20081010
  Serious: No
  Sender: FDA-Public Use
  Company Number: US-BAYER-US-2006-040888

PATIENT
  Age: 55 Year
  Sex: Female
  Weight: 54 kg

DRUGS (5)
  1. CLIMARA [Suspect]
     Indication: HORMONE REPLACEMENT THERAPY
     Route: 062
     Dates: start: 20061105, end: 20061214
  2. CLIMARA [Suspect]
     Route: 062
     Dates: start: 20061214, end: 20061228
  3. CLIMARA [Suspect]
     Route: 062
     Dates: start: 20061228
  4. LEVOXYL [Concomitant]
     Route: 048
  5. PROMETRIUM [Concomitant]
     Route: 048

REACTIONS (2)
  - ALOPECIA [None]
  - PARAESTHESIA [None]
